FAERS Safety Report 22292278 (Version 1)
Quarter: 2023Q2

REPORT INFORMATION
  Report Type: Spontaneous
  Country: NL (occurrence: NL)
  Receive Date: 20230508
  Receipt Date: 20230508
  Transmission Date: 20230721
  Serious: Yes (Hospitalization)
  Sender: FDA-Public Use
  Company Number: None

PATIENT
  Age: 69 Year
  Sex: Male

DRUGS (4)
  1. ACYCLOVIR [Suspect]
     Active Substance: ACYCLOVIR
     Indication: Encephalitis
  2. ACYCLOVIR [Suspect]
     Active Substance: ACYCLOVIR
  3. ACYCLOVIR [Suspect]
     Active Substance: ACYCLOVIR
  4. MYCOPHENOLATE MOFETIL [Concomitant]
     Active Substance: MYCOPHENOLATE MOFETIL
     Indication: Prophylaxis

REACTIONS (4)
  - Drug interaction [Unknown]
  - Overdose [Unknown]
  - Myoclonus [Unknown]
  - Confusional state [Unknown]
